FAERS Safety Report 10717902 (Version 1)
Quarter: 2015Q1

REPORT INFORMATION
  Report Type: Spontaneous
  Country: CA (occurrence: CA)
  Receive Date: 20150116
  Receipt Date: 20150116
  Transmission Date: 20150721
  Serious: Yes (Other)
  Sender: FDA-Public Use
  Company Number: ALCN2015CA000566

PATIENT
  Age: 6 Year
  Sex: Female

DRUGS (1)
  1. CIPRODEX [Suspect]
     Active Substance: CIPROFLOXACIN HYDROCHLORIDE\DEXAMETHASONE
     Dosage: 1 DF, UNK
     Route: 001

REACTIONS (4)
  - Ear infection [Unknown]
  - Tympanic membrane perforation [Unknown]
  - Pain [Unknown]
  - Bloody discharge [Unknown]
